FAERS Safety Report 7451036-8 (Version None)
Quarter: 2011Q2

REPORT INFORMATION
  Report Type: 
  Country: None (occurrence: None)
  Receive Date: 20110429
  Receipt Date: 20110429
  Transmission Date: 20111010
  Serious: No
  Sender: FDA-Public Use
  Company Number: None

PATIENT
  Sex: Female
  Weight: 66.36 kg

DRUGS (4)
  1. LEUCOVORIN CALCIUM [Suspect]
     Dosage: 2076 MG
  2. FLUOROURACIL [Suspect]
     Dosage: 12596 MG
  3. IRINOTECAN HCL [Suspect]
     Dosage: 831 MG
  4. AVASTIN [Suspect]
     Dosage: 990 MG

REACTIONS (1)
  - STAPHYLOCOCCAL SKIN INFECTION [None]
